FAERS Safety Report 12586506 (Version 2)
Quarter: 2016Q4

REPORT INFORMATION
  Report Type: Spontaneous
  Country: US (occurrence: US)
  Receive Date: 20160725
  Receipt Date: 20161103
  Transmission Date: 20170207
  Serious: No
  Sender: FDA-Public Use
  Company Number: US-PFIZER INC-2016320475

PATIENT
  Age: 53 Year
  Sex: Male
  Weight: 82.55 kg

DRUGS (1)
  1. REVATIO [Suspect]
     Active Substance: SILDENAFIL CITRATE
     Indication: PULMONARY ARTERIAL HYPERTENSION
     Dosage: 20 MG, 1 PILL 3 TIMES A DAY

REACTIONS (1)
  - Right ventricular systolic pressure increased [Recovered/Resolved]

NARRATIVE: CASE EVENT DATE: 201502
